FAERS Safety Report 18177012 (Version 5)
Quarter: 2022Q1

REPORT INFORMATION
  Report Type: Report from Study
  Country: CO (occurrence: CO)
  Receive Date: 20200821
  Receipt Date: 20220128
  Transmission Date: 20220423
  Serious: Yes (Hospitalization, Other)
  Sender: FDA-Public Use
  Company Number: CO-ABBVIE-20K-036-3416625-00

PATIENT
  Sex: Female
  Weight: 78 kg

DRUGS (8)
  1. HUMIRA [Suspect]
     Active Substance: ADALIMUMAB
     Indication: Rheumatoid arthritis
     Route: 058
     Dates: start: 20120326
  2. HUMIRA [Suspect]
     Active Substance: ADALIMUMAB
     Indication: Rheumatoid arthritis
     Route: 058
     Dates: end: 2020
  3. HUMIRA [Suspect]
     Active Substance: ADALIMUMAB
     Route: 058
     Dates: end: 20210713
  4. HUMIRA [Suspect]
     Active Substance: ADALIMUMAB
     Route: 058
  5. LOSARTAN [Concomitant]
     Active Substance: LOSARTAN
     Indication: Hypertension
  6. AMLODIPINE BESYLATE [Concomitant]
     Active Substance: AMLODIPINE BESYLATE
     Indication: Hypertension
  7. ATORVASTATIN [Concomitant]
     Active Substance: ATORVASTATIN
     Indication: Blood cholesterol increased
  8. ASPIRIN [Concomitant]
     Active Substance: ASPIRIN
     Indication: Cardiovascular disorder

REACTIONS (31)
  - Intervertebral disc disorder [Recovering/Resolving]
  - Lumbar hernia [Recovering/Resolving]
  - Sjogren^s syndrome [Recovering/Resolving]
  - Intervertebral disc space narrowing [Unknown]
  - Amnesia [Not Recovered/Not Resolved]
  - Choking [Unknown]
  - Osteoporosis [Recovering/Resolving]
  - Blood pressure abnormal [Unknown]
  - Skin laceration [Unknown]
  - Limb injury [Recovering/Resolving]
  - Speech disorder [Recovering/Resolving]
  - Oropharyngeal discomfort [Recovering/Resolving]
  - Tooth disorder [Recovering/Resolving]
  - Body height decreased [Not Recovered/Not Resolved]
  - Gait disturbance [Recovering/Resolving]
  - Osteoarthritis [Recovering/Resolving]
  - Spinal disorder [Not Recovered/Not Resolved]
  - Back disorder [Not Recovered/Not Resolved]
  - Restlessness [Unknown]
  - Cough [Recovering/Resolving]
  - Arthritis [Recovering/Resolving]
  - Insomnia [Not Recovered/Not Resolved]
  - Arthropathy [Recovering/Resolving]
  - Pruritus [Unknown]
  - Infection [Unknown]
  - Sinusitis [Recovering/Resolving]
  - Spinal pain [Recovering/Resolving]
  - Unevaluable event [Unknown]
  - Post-traumatic pain [Recovering/Resolving]
  - Pharyngitis [Recovering/Resolving]
  - Laryngitis [Recovering/Resolving]

NARRATIVE: CASE EVENT DATE: 20150101
